FAERS Safety Report 10045503 (Version 1)
Quarter: 2014Q1

REPORT INFORMATION
  Report Type: Spontaneous
  Country: BR (occurrence: BR)
  Receive Date: 20140328
  Receipt Date: 20140328
  Transmission Date: 20141002
  Serious: Yes (Hospitalization, Other)
  Sender: FDA-Public Use
  Company Number: BR-ELI_LILLY_AND_COMPANY-BR201403006614

PATIENT
  Sex: Female
  Weight: 96 kg

DRUGS (21)
  1. HUMALOG [Suspect]
     Indication: DIABETES MELLITUS
     Dosage: UNK UNK, PRN
     Route: 058
     Dates: start: 2012
  2. HUMALOG [Suspect]
     Dosage: UNK UNK, PRN
     Route: 058
  3. VICTOZA [Suspect]
     Indication: PRODUCT USED FOR UNKNOWN INDICATION
     Dosage: UNK, UNKNOWN
     Route: 065
  4. PANTOPRAZOL [Concomitant]
     Indication: GASTRIC DISORDER
     Dosage: 40 MG, BID
     Route: 065
  5. CARVEDILOL [Concomitant]
     Indication: CARDIAC DISORDER
     Dosage: 12.5 MG, BID
     Route: 065
  6. ASPIRINA [Concomitant]
     Indication: PROPHYLAXIS
     Dosage: 100 MG, UNKNOWN
     Route: 065
  7. CRESTOR [Concomitant]
     Indication: BLOOD CHOLESTEROL
     Dosage: 10 MG, UNKNOWN
     Route: 065
  8. CRESTOR [Concomitant]
     Indication: BLOOD TRIGLYCERIDES
  9. ALDAZIDA [Concomitant]
     Indication: DIURETIC THERAPY
     Dosage: 25 MG, QD
     Route: 065
  10. GALVUS MET [Concomitant]
     Indication: DIABETES MELLITUS
     Dosage: UNK, TID
     Route: 065
  11. CYCLOBENZAPRINE [Concomitant]
     Indication: MUSCLE RELAXANT THERAPY
  12. PIROXICAM [Concomitant]
     Indication: ANTIINFLAMMATORY THERAPY
     Dosage: 20 MG, QD
     Route: 065
  13. XARELTO [Concomitant]
     Indication: CARDIOVASCULAR DISORDER
     Dosage: 20 MG, QD
     Route: 065
  14. DUSPATALIN [Concomitant]
     Indication: PROPHYLAXIS AGAINST DIARRHOEA
     Dosage: 200 MG, QD
     Route: 065
  15. CREON [Concomitant]
     Indication: PANCREATIC ENZYME ABNORMALITY
     Dosage: UNK, UNKNOWN
     Route: 065
  16. FLORATIL [Concomitant]
     Indication: PRODUCT USED FOR UNKNOWN INDICATION
     Dosage: UNK, PRN
     Route: 065
  17. IMOSEC [Concomitant]
     Indication: PRODUCT USED FOR UNKNOWN INDICATION
     Dosage: UNK, PRN
     Route: 065
  18. LANTUS [Concomitant]
     Indication: BLOOD GLUCOSE INCREASED
     Dosage: 35 IU, QD
     Route: 065
  19. VITAMIN B [Concomitant]
     Indication: PRODUCT USED FOR UNKNOWN INDICATION
     Dosage: UNK, UNKNOWN
     Route: 065
  20. VITAMIN C [Concomitant]
     Indication: PRODUCT USED FOR UNKNOWN INDICATION
     Dosage: UNK, UNKNOWN
     Route: 065
  21. ZOPIDEM [Concomitant]
     Indication: SLEEP DISORDER
     Dosage: UNK, UNKNOWN
     Route: 065

REACTIONS (5)
  - Blood glucose increased [Recovered/Resolved]
  - Pancreatic carcinoma [Recovering/Resolving]
  - Diabetic coma [Unknown]
  - Thrombosis [Not Recovered/Not Resolved]
  - Burning sensation [Not Recovered/Not Resolved]
